FAERS Safety Report 6670187-9 (Version None)
Quarter: 2010Q2

REPORT INFORMATION
  Report Type: 
  Country: None (occurrence: None)
  Receive Date: 20100406
  Receipt Date: 20100310
  Transmission Date: 20101027
  Serious: No
  Sender: FDA-Public Use
  Company Number: US-ALLERGAN-1003175US

PATIENT
  Sex: Female

DRUGS (4)
  1. LATISSE [Suspect]
     Indication: GROWTH OF EYELASHES
     Dosage: 1 GTT, QHS
  2. LATISSE [Suspect]
     Dosage: 2-3 TIMES/WEEK
     Route: 061
  3. FISH OIL [Concomitant]
  4. MULTI-VITAMIN [Concomitant]

REACTIONS (1)
  - MADAROSIS [None]
